FAERS Safety Report 12764979 (Version 1)
Quarter: 2016Q3

REPORT INFORMATION
  Report Type: Spontaneous
  Country: US (occurrence: US)
  Receive Date: 20160921
  Receipt Date: 20160921
  Transmission Date: 20161109
  Serious: No
  Sender: FDA-Public Use
  Company Number: US-TEVA-685447USA

PATIENT
  Age: 26 Year
  Sex: Female

DRUGS (1)
  1. COPAXONE [Suspect]
     Active Substance: GLATIRAMER ACETATE
     Indication: MULTIPLE SCLEROSIS
     Dosage: 23-07-2015
     Route: 058

REACTIONS (3)
  - Drug dose omission [Unknown]
  - Influenza [Unknown]
  - Injection site reaction [Unknown]

NARRATIVE: CASE EVENT DATE: 201607
